FAERS Safety Report 21243711 (Version 1)
Quarter: 2022Q3

REPORT INFORMATION
  Report Type: Spontaneous
  Country: FR (occurrence: FR)
  Receive Date: 20220823
  Receipt Date: 20220823
  Transmission Date: 20221027
  Serious: Yes (Hospitalization)
  Sender: FDA-Public Use
  Company Number: None

PATIENT
  Age: 88 Year
  Sex: Female
  Weight: 75 kg

DRUGS (3)
  1. FLUCONAZOLE [Suspect]
     Active Substance: FLUCONAZOLE
     Indication: Oropharyngitis fungal
     Dosage: 1CP/J
     Route: 048
     Dates: start: 20220614, end: 20220624
  2. WARFARIN SODIUM [Suspect]
     Active Substance: WARFARIN SODIUM
     Indication: Thrombosis prophylaxis
     Dosage: 6MG/J
     Route: 048
     Dates: end: 20220707
  3. MICONAZOLE [Suspect]
     Active Substance: MICONAZOLE
     Indication: Oropharyngitis fungal
     Dosage: UNK
     Route: 048
     Dates: start: 20220614, end: 20220624

REACTIONS (1)
  - Haemorrhage [Recovered/Resolved]

NARRATIVE: CASE EVENT DATE: 20220706
